FAERS Safety Report 6376028-1 (Version None)
Quarter: 2009Q3

REPORT INFORMATION
  Report Type: 
  Country: None (occurrence: None)
  Receive Date: 20090924
  Receipt Date: 20090916
  Transmission Date: 20100115
  Serious: Yes (Other)
  Sender: FDA-Public Use
  Company Number: PHEH2009US11024

PATIENT
  Sex: Female

DRUGS (2)
  1. EXELON [Suspect]
     Dosage: UNK, UNK
     Route: 062
     Dates: end: 20090901
  2. EXELON [Suspect]
     Dosage: 4.6 MG, DAILY
     Route: 062
     Dates: start: 20090901

REACTIONS (3)
  - CONFUSIONAL STATE [None]
  - HALLUCINATION [None]
  - MEDICATION ERROR [None]
